FAERS Safety Report 16325119 (Version 1)
Quarter: 2019Q2

REPORT INFORMATION
  Report Type: Spontaneous
  Country: DE (occurrence: DE)
  Receive Date: 20190517
  Receipt Date: 20190517
  Transmission Date: 20190711
  Serious: Yes (Hospitalization, Other)
  Sender: FDA-Public Use
  Company Number: DE-ASTRAZENECA-2019SE70837

PATIENT
  Age: 75 Year
  Sex: Female

DRUGS (9)
  1. TAVOR [Concomitant]
     Dates: start: 20090929
  2. CIPRAMIL [CITALOPRAM HYDROBROMIDE] [Interacting]
     Active Substance: CITALOPRAM HYDROBROMIDE
     Route: 065
     Dates: start: 20091216
  3. CIPRAMIL [CITALOPRAM HYDROBROMIDE] [Interacting]
     Active Substance: CITALOPRAM HYDROBROMIDE
     Route: 065
     Dates: start: 20091204, end: 20091210
  4. MARCUMAR [Concomitant]
     Active Substance: PHENPROCOUMON
     Dosage: AFTER INTERNATIONAL NORMALIZED RATIO
  5. REMERGIL [Concomitant]
     Active Substance: MIRTAZAPINE
     Dates: start: 20091007
  6. REMERGIL [Concomitant]
     Active Substance: MIRTAZAPINE
     Dates: start: 20090908
  7. SEROQUEL [Suspect]
     Active Substance: QUETIAPINE FUMARATE
     Route: 048
     Dates: start: 20091014, end: 20091214
  8. CIPRAMIL [CITALOPRAM HYDROBROMIDE] [Interacting]
     Active Substance: CITALOPRAM HYDROBROMIDE
     Route: 065
     Dates: start: 20091211, end: 20091215
  9. DELIX [Concomitant]

REACTIONS (2)
  - Electrocardiogram QT prolonged [Recovering/Resolving]
  - Drug interaction [Recovering/Resolving]

NARRATIVE: CASE EVENT DATE: 20091214
